FAERS Safety Report 7996409-X (Version None)
Quarter: 2011Q4

REPORT INFORMATION
  Report Type: 
  Country: None (occurrence: None)
  Receive Date: 20111220
  Receipt Date: 20111213
  Transmission Date: 20120403
  Serious: Yes (Other)
  Sender: FDA-Public Use
  Company Number: PHHY2011GB108525

PATIENT
  Age: 29 Year
  Sex: Female

DRUGS (1)
  1. CARBOPLATIN [Suspect]
     Dosage: 50 MG

REACTIONS (1)
  - ACCIDENTAL EXPOSURE [None]
